FAERS Safety Report 14381148 (Version 2)
Quarter: 2018Q1

REPORT INFORMATION
  Report Type: Spontaneous
  Country: US (occurrence: US)
  Receive Date: 20180112
  Receipt Date: 20180122
  Transmission Date: 20180509
  Serious: No
  Sender: FDA-Public Use
  Company Number: US-TEVA-2017-US-839237

PATIENT
  Age: 2 Year
  Sex: Female

DRUGS (2)
  1. LEVALBUTEROL. [Suspect]
     Active Substance: LEVALBUTEROL
     Dosage: 1.25 MG/0.5 ML , APPROXIMATELY FOUR WEEKS AGO
     Route: 065
     Dates: start: 20171112
  2. LEVALBUTEROL. [Suspect]
     Active Substance: LEVALBUTEROL
     Indication: BRONCHIOLITIS
     Dosage: 1.25 MG/0.5 ML , APPROXIMATELY FOUR WEEKS AGO
     Route: 065
     Dates: start: 20171221

REACTIONS (3)
  - Product preparation error [Unknown]
  - Product use complaint [Unknown]
  - Cough [Not Recovered/Not Resolved]

NARRATIVE: CASE EVENT DATE: 20171112
